FAERS Safety Report 24101403 (Version 1)
Quarter: 2024Q3

REPORT INFORMATION
  Report Type: Spontaneous
  Country: US (occurrence: US)
  Receive Date: 20240717
  Receipt Date: 20240717
  Transmission Date: 20241017
  Serious: No
  Sender: NOVO NORDISK
  Company Number: US-NOVOPROD-1185543

PATIENT
  Sex: Male

DRUGS (1)
  1. OZEMPIC [Suspect]
     Active Substance: SEMAGLUTIDE
     Indication: Type 2 diabetes mellitus
     Dosage: 0.5 MG
     Route: 058
     Dates: start: 20231208

REACTIONS (5)
  - Chromaturia [Unknown]
  - Nausea [Unknown]
  - Constipation [Unknown]
  - Wrong technique in product usage process [Unknown]
  - Product availability issue [Not Recovered/Not Resolved]
